FAERS Safety Report 8064181-3 (Version None)
Quarter: 2012Q1

REPORT INFORMATION
  Report Type: 
  Country: None (occurrence: None)
  Receive Date: 20120123
  Receipt Date: 20120110
  Transmission Date: 20120608
  Serious: Yes (Hospitalization)
  Sender: FDA-Public Use
  Company Number: US-JNJFOC-20110407873

PATIENT
  Age: 62 Year
  Sex: Female
  Weight: 73.6 kg

DRUGS (10)
  1. EXTRA STRENGTH TYLENOL [Suspect]
     Route: 065
  2. ZONISAMIDE [Suspect]
     Indication: PAIN
  3. FENTANYL [Suspect]
     Indication: PAIN
  4. FLUCONAZOLE [Suspect]
     Indication: PAIN
  5. METAXALONE [Suspect]
     Indication: PAIN
  6. EXTRA STRENGTH TYLENOL [Suspect]
     Indication: PAIN
     Route: 065
  7. ALPRAZOLAM [Suspect]
     Indication: PAIN
  8. DIPHENHYDRAMINE HCL [Suspect]
     Indication: PAIN
  9. PERCOCET [Suspect]
     Indication: PAIN
  10. FIORICET [Suspect]
     Indication: PAIN

REACTIONS (7)
  - RHABDOMYOLYSIS [None]
  - RESPIRATORY DEPRESSION [None]
  - MULTIPLE DRUG OVERDOSE [None]
  - TRANSAMINASES INCREASED [None]
  - DRUG ABUSE [None]
  - RENAL TUBULAR NECROSIS [None]
  - PROTHROMBIN LEVEL INCREASED [None]
